FAERS Safety Report 8524275-2 (Version None)
Quarter: 2012Q3

REPORT INFORMATION
  Report Type: 
  Country: None (occurrence: None)
  Receive Date: 20120720
  Receipt Date: 20120718
  Transmission Date: 20120928
  Serious: Yes (Life-Threatening, Hospitalization)
  Sender: FDA-Public Use
  Company Number: ES-ABBOTT-12P-144-0957646-00

PATIENT
  Age: 79 Year
  Sex: Male

DRUGS (6)
  1. CARVEDILOL [Interacting]
     Indication: ISCHAEMIC CARDIOMYOPATHY
     Route: 048
     Dates: start: 20100101, end: 20120610
  2. METFORMIN HCL [Interacting]
     Indication: DIABETES MELLITUS
     Route: 048
     Dates: start: 20100101, end: 20120610
  3. ACETYLSALICYLIC ACID SRT [Interacting]
     Indication: ISCHAEMIC CARDIOMYOPATHY
     Route: 048
     Dates: start: 20110101, end: 20120610
  4. REGULAR DRA-SUM ONT [Suspect]
     Indication: HYPERTENSION
     Dates: start: 20110101, end: 20120610
  5. MANIDIPINE [Interacting]
     Indication: HYPERTENSION
     Route: 048
     Dates: start: 20100101, end: 20120610
  6. NITROGLYCERIN [Interacting]
     Indication: ISCHAEMIC CARDIOMYOPATHY
     Route: 048
     Dates: start: 20100101, end: 20120610

REACTIONS (3)
  - LACTIC ACIDOSIS [None]
  - RENAL FAILURE ACUTE [None]
  - HYPERKALAEMIA [None]
